FAERS Safety Report 10775073 (Version 1)
Quarter: 2015Q1

REPORT INFORMATION
  Report Type: Spontaneous
  Country: US (occurrence: None)
  Receive Date: 20150205
  Receipt Date: 20150205
  Transmission Date: 20150721
  Serious: Yes (Death, Hospitalization, Other)
  Sender: FDA-Public Use
  Company Number: 201501119

PATIENT
  Age: 55 Year
  Sex: Male

DRUGS (1)
  1. TESTIM [Suspect]
     Active Substance: TESTOSTERONE
     Route: 062
     Dates: start: 2003, end: 2011

REACTIONS (7)
  - Cardiac arrest [None]
  - Injury [None]
  - Pain [None]
  - Pulmonary embolism [None]
  - Economic problem [None]
  - Unevaluable event [None]
  - Emotional distress [None]

NARRATIVE: CASE EVENT DATE: 20110124
